FAERS Safety Report 7483697-1 (Version None)
Quarter: 2011Q2

REPORT INFORMATION
  Report Type: 
  Country: None (occurrence: None)
  Receive Date: 20110517
  Receipt Date: 20110505
  Transmission Date: 20111010
  Serious: Yes (Hospitalization)
  Sender: FDA-Public Use
  Company Number: PHHY2011US38073

PATIENT
  Sex: Female

DRUGS (4)
  1. PROCRIT [Concomitant]
     Dosage: UNK
  2. ZOLPIDEM [Concomitant]
     Dosage: UNK
  3. EXJADE [Suspect]
     Indication: MYELODYSPLASTIC SYNDROME
     Dosage: 1500 MG, QD
     Route: 048
     Dates: start: 20110308
  4. LISINOPRIL [Concomitant]
     Dosage: UNK

REACTIONS (3)
  - NAUSEA [None]
  - BREAST CANCER [None]
  - DIARRHOEA [None]
